FAERS Safety Report 9549361 (Version 1)
Quarter: 2013Q3

REPORT INFORMATION
  Report Type: Spontaneous
  Country: US (occurrence: US)
  Receive Date: 20130924
  Receipt Date: 20130924
  Transmission Date: 20140515
  Serious: Yes (Other)
  Sender: FDA-Public Use
  Company Number: US-ABBVIE-13P-163-1148052-00

PATIENT
  Age: 55 Year
  Sex: Female
  Weight: 89.89 kg

DRUGS (11)
  1. SYNTHROID 125 MCG [Suspect]
     Indication: AUTOIMMUNE THYROIDITIS
     Route: 048
     Dates: start: 20130910
  2. SYNTHROID 125 MCG [Suspect]
     Indication: THYROIDECTOMY
  3. SYNTHROID 112 MCG [Suspect]
     Indication: AUTOIMMUNE THYROIDITIS
     Dates: start: 20130730, end: 20130909
  4. SYNTHROID 112 MCG [Suspect]
     Indication: THYROIDECTOMY
  5. SYNTHROID 100 MCG [Suspect]
     Indication: AUTOIMMUNE THYROIDITIS
     Dates: start: 2011, end: 20130729
  6. SYNTHROID 100 MCG [Suspect]
     Indication: THYROIDECTOMY
  7. SYNTHROID 75 MCG [Suspect]
     Indication: AUTOIMMUNE THYROIDITIS
     Route: 048
     Dates: start: 2005
  8. SYNTHROID 75 MCG [Suspect]
     Indication: THYROIDECTOMY
  9. TIROSINT [Suspect]
     Indication: AUTOIMMUNE THYROIDITIS
     Dates: start: 2013, end: 2013
  10. CYTOMEL [Concomitant]
     Indication: HYPOTHYROIDISM
  11. SPIRALACTONE [Concomitant]
     Indication: POLYCYSTIC OVARIES

REACTIONS (11)
  - Thyroid cancer [Recovering/Resolving]
  - Weight increased [Not Recovered/Not Resolved]
  - Fatigue [Not Recovered/Not Resolved]
  - Arthralgia [Not Recovered/Not Resolved]
  - Myalgia [Not Recovered/Not Resolved]
  - Alopecia [Not Recovered/Not Resolved]
  - Gingival bleeding [Not Recovered/Not Resolved]
  - Polycystic ovaries [Not Recovered/Not Resolved]
  - Palpitations [Not Recovered/Not Resolved]
  - Abdominal distension [Recovered/Resolved]
  - Abdominal discomfort [Recovered/Resolved]
